FAERS Safety Report 14123778 (Version 1)
Quarter: 2017Q4

REPORT INFORMATION
  Report Type: Spontaneous
  Country: US (occurrence: US)
  Receive Date: 20171025
  Receipt Date: 20171025
  Transmission Date: 20180321
  Serious: Yes (Other)
  Sender: FDA-Public Use
  Company Number: US-BIOVITRUM-2017US1000

PATIENT
  Sex: Male

DRUGS (5)
  1. KINERET [Suspect]
     Active Substance: ANAKINRA
     Indication: STILL^S DISEASE
  2. BACTRIM [Concomitant]
     Active Substance: SULFAMETHOXAZOLE\TRIMETHOPRIM
  3. IVIG [Concomitant]
     Active Substance: HUMAN IMMUNOGLOBULIN G
  4. ZANTAC [Concomitant]
     Active Substance: RANITIDINE HYDROCHLORIDE
  5. ANTIBIOTICS [Concomitant]
     Active Substance: UNSPECIFIED INGREDIENT

REACTIONS (7)
  - Urticaria [Unknown]
  - Cough [Unknown]
  - Pneumonia [Not Recovered/Not Resolved]
  - Clubbing [Unknown]
  - Respiratory distress [Unknown]
  - Anaphylactic reaction [Unknown]
  - Failure to thrive [Unknown]
